FAERS Safety Report 10548004 (Version 2)
Quarter: 2015Q2

REPORT INFORMATION
  Report Type: Spontaneous
  Country: US (occurrence: US)
  Receive Date: 20141028
  Receipt Date: 20150409
  Transmission Date: 20150821
  Serious: No
  Sender: FDA-Public Use
  Company Number: US-PFIZER INC-2014292011

PATIENT
  Age: 53 Year
  Sex: Female

DRUGS (13)
  1. COENZYME Q10 [Concomitant]
     Active Substance: UBIDECARENONE
     Dosage: 100 MG, UNK
     Dates: start: 201401
  2. VITAMIN D3 [Concomitant]
     Active Substance: CHOLECALCIFEROL
     Dosage: 1000 IU, UNK
     Dates: start: 2011
  3. IRBESARTAN. [Concomitant]
     Active Substance: IRBESARTAN
     Dosage: 150 MG, UNK
     Dates: start: 201409
  4. ACETAMINOPHEN. [Concomitant]
     Active Substance: ACETAMINOPHEN
     Dosage: 325 MG, UNK
     Route: 048
     Dates: start: 201209
  5. INLYTA [Suspect]
     Active Substance: AXITINIB
     Indication: RENAL CANCER
     Dosage: 5 MG, 2X/DAY
     Dates: start: 20140721, end: 20141008
  6. NORVASC [Concomitant]
     Active Substance: AMLODIPINE BESYLATE
     Dosage: 5 MG, UNK
     Dates: start: 201005
  7. INLYTA [Suspect]
     Active Substance: AXITINIB
     Dosage: 6 MG, DAILY
  8. INLYTA [Suspect]
     Active Substance: AXITINIB
     Dosage: 5 MG, 2X/DAY
     Dates: start: 201412
  9. INLYTA [Suspect]
     Active Substance: AXITINIB
     Dosage: UNK
  10. BIOTIN [Concomitant]
     Active Substance: BIOTIN
     Dosage: UNK
     Dates: start: 201109
  11. PRAVASTATIN SODIUM. [Concomitant]
     Active Substance: PRAVASTATIN SODIUM
     Dosage: UNK
     Dates: start: 201401
  12. ACYCLOVIR. [Concomitant]
     Active Substance: ACYCLOVIR
     Dosage: 800 MG, 2X/DAY
     Dates: start: 201409
  13. OXYCODONE [Concomitant]
     Active Substance: OXYCODONE
     Dosage: 325 MG, UNK
     Route: 048
     Dates: start: 201209

REACTIONS (13)
  - Migraine [Recovered/Resolved]
  - Vomiting [Recovered/Resolved]
  - Fatigue [Recovered/Resolved]
  - Alopecia [Recovered/Resolved]
  - Dry eye [Recovered/Resolved]
  - Oropharyngeal pain [Recovered/Resolved]
  - Feeling of body temperature change [Not Recovered/Not Resolved]
  - Visual impairment [Recovered/Resolved]
  - Dysphonia [Recovered/Resolved]
  - Dry mouth [Recovered/Resolved]
  - Glossodynia [Recovered/Resolved]
  - Cough [Recovered/Resolved]
  - Arthralgia [Recovered/Resolved]

NARRATIVE: CASE EVENT DATE: 201410
